FAERS Safety Report 24837759 (Version 1)
Quarter: 2025Q1

REPORT INFORMATION
  Report Type: Spontaneous
  Country: US (occurrence: US)
  Receive Date: 20250113
  Receipt Date: 20250113
  Transmission Date: 20250408
  Serious: Yes (Other)
  Sender: ALCON
  Company Number: US-ALCON LABORATORIES-ALC2024US005616

PATIENT
  Age: 63 Year
  Sex: Female

DRUGS (5)
  1. SYSTANE COMPLETE [Suspect]
     Active Substance: PROPYLENE GLYCOL
     Route: 047
     Dates: start: 20241010, end: 20241010
  2. SYSTANE COMPLETE [Suspect]
     Active Substance: PROPYLENE GLYCOL
     Indication: Product used for unknown indication
     Route: 047
     Dates: start: 20241010, end: 20241010
  3. DOXYCYCLINE [Concomitant]
     Active Substance: DOXYCYCLINE
     Route: 048
  4. DOXYCYCLINE [Concomitant]
     Active Substance: DOXYCYCLINE
     Indication: Hordeolum
     Route: 065
  5. TOBRAMYCIN AND DEXAMETHASONE [Concomitant]
     Active Substance: DEXAMETHASONE\TOBRAMYCIN
     Indication: Hordeolum
     Route: 047

REACTIONS (4)
  - Iridocyclitis [Not Recovered/Not Resolved]
  - Suspected product contamination [Unknown]
  - Depression [Not Recovered/Not Resolved]
  - Eye pruritus [Not Recovered/Not Resolved]

NARRATIVE: CASE EVENT DATE: 20241010
